FAERS Safety Report 14641370 (Version 1)
Quarter: 2018Q1

REPORT INFORMATION
  Report Type: Spontaneous
  Country: US (occurrence: US)
  Receive Date: 20180315
  Receipt Date: 20180315
  Transmission Date: 20180509
  Serious: No
  Sender: FDA-Public Use
  Company Number: US-MISSION PHARMACAL COMPANY-2043828

PATIENT
  Age: 30 Year
  Sex: Female

DRUGS (1)
  1. THIOLA [Suspect]
     Active Substance: TIOPRONIN
     Indication: NEPHROLITHIASIS
     Route: 065
     Dates: start: 20180301

REACTIONS (4)
  - Breast pain [Recovered/Resolved]
  - Fatigue [Unknown]
  - Urine odour abnormal [Unknown]
  - Muscle spasms [Unknown]
